FAERS Safety Report 13709617 (Version 1)
Quarter: 2017Q3

REPORT INFORMATION
  Report Type: Spontaneous
  Country: DE (occurrence: DE)
  Receive Date: 20170703
  Receipt Date: 20170703
  Transmission Date: 20171127
  Serious: Yes (Other)
  Sender: FDA-Public Use
  Company Number: DE-ACCORD-053133

PATIENT
  Age: 5 Year
  Sex: Male

DRUGS (20)
  1. SODIUM CHLORIDE. [Concomitant]
     Active Substance: SODIUM CHLORIDE
     Indication: CYSTIC FIBROSIS
     Dosage: HYPERTONIC SALINE
  2. IPRATROPIUM [Concomitant]
     Active Substance: IPRATROPIUM
     Indication: CYSTIC FIBROSIS
  3. PYRIDOXINE [Concomitant]
     Active Substance: PYRIDOXINE
     Indication: CYSTIC FIBROSIS
  4. ERGOCALCIFEROL. [Concomitant]
     Active Substance: ERGOCALCIFEROL
     Indication: CYSTIC FIBROSIS
  5. CISPLATIN. [Suspect]
     Active Substance: CISPLATIN
     Indication: OSTEOSARCOMA
     Dosage: MAP REGIMEN
  6. METHOTREXATE. [Suspect]
     Active Substance: METHOTREXATE
     Indication: OSTEOSARCOMA
     Dosage: 12 G/M2, MAP REGIMEN
  7. NICOTINIC ACID [Concomitant]
     Active Substance: NIACIN
     Indication: CYSTIC FIBROSIS
  8. SALBUTAMOL [Concomitant]
     Active Substance: ALBUTEROL
     Indication: CYSTIC FIBROSIS
  9. RETINOL [Concomitant]
     Active Substance: RETINOL
     Indication: CYSTIC FIBROSIS
  10. TOCOPHEROL [Concomitant]
     Active Substance: TOCOPHEROL
     Indication: CYSTIC FIBROSIS
  11. ACETYLCYSTEINE. [Concomitant]
     Active Substance: ACETYLCYSTEINE
     Indication: CYSTIC FIBROSIS
  12. RIBOFLAVIN [Concomitant]
     Active Substance: RIBOFLAVIN
     Indication: CYSTIC FIBROSIS
  13. ASCORBIC ACID. [Concomitant]
     Active Substance: ASCORBIC ACID
     Indication: CYSTIC FIBROSIS
  14. CYANOCOBALAMIN. [Concomitant]
     Active Substance: CYANOCOBALAMIN
     Indication: CYSTIC FIBROSIS
  15. FOLIC ACID. [Concomitant]
     Active Substance: FOLIC ACID
     Indication: CYSTIC FIBROSIS
  16. PANTOTHENIC ACID [Concomitant]
     Active Substance: PANTOTHENIC ACID
     Indication: CYSTIC FIBROSIS
  17. DOXORUBICIN [Suspect]
     Active Substance: DOXORUBICIN
     Indication: OSTEOSARCOMA
     Dosage: MAP REGIMEN
  18. BIOTIN [Concomitant]
     Active Substance: BIOTIN
     Indication: CYSTIC FIBROSIS
  19. THIAMINE. [Concomitant]
     Active Substance: THIAMINE
     Indication: CYSTIC FIBROSIS
  20. CEFUROXIME. [Concomitant]
     Active Substance: CEFUROXIME
     Indication: ANTIBIOTIC PROPHYLAXIS

REACTIONS (3)
  - Off label use [Unknown]
  - Febrile neutropenia [Recovered/Resolved]
  - Weight decreased [Recovered/Resolved]
